FAERS Safety Report 6140613-2 (Version None)
Quarter: 2009Q2

REPORT INFORMATION
  Report Type: 
  Country: None (occurrence: None)
  Receive Date: 20090402
  Receipt Date: 20090324
  Transmission Date: 20091009
  Serious: Yes (Hospitalization)
  Sender: FDA-Public Use
  Company Number: TR-RANBAXY-2009RR-23048

PATIENT
  Age: 20 Year
  Sex: Female

DRUGS (3)
  1. METFORMIN HCL [Suspect]
     Indication: SUICIDE ATTEMPT
     Dosage: 76.5 G, UNK
     Route: 048
  2. METFORMIN HCL [Concomitant]
     Indication: OBESITY
     Dosage: 850 MG, QD
  3. METFORMIN HCL [Concomitant]
     Indication: GLUCOSE TOLERANCE IMPAIRED

REACTIONS (3)
  - COAGULOPATHY [None]
  - METABOLIC ACIDOSIS [None]
  - OVERDOSE [None]
